FAERS Safety Report 23457397 (Version 4)
Quarter: 2024Q2

REPORT INFORMATION
  Report Type: Report from Study
  Country: CA (occurrence: CA)
  Receive Date: 20240130
  Receipt Date: 20240516
  Transmission Date: 20240716
  Serious: Yes (Other)
  Sender: FDA-Public Use
  Company Number: CA-MMM-TS4AP8RV

PATIENT

DRUGS (14)
  1. MEPOLIZUMAB [Suspect]
     Active Substance: MEPOLIZUMAB
     Indication: Asthma
     Dosage: 100 MG, Q4W
     Dates: start: 20210802
  2. MEPOLIZUMAB [Suspect]
     Active Substance: MEPOLIZUMAB
     Indication: Asthma
     Dosage: 100 MG, Q4W
     Route: 058
  3. MEPOLIZUMAB [Suspect]
     Active Substance: MEPOLIZUMAB
     Indication: Asthma
     Dosage: 100 MG, Q4W
     Route: 058
  4. MEPOLIZUMAB [Suspect]
     Active Substance: MEPOLIZUMAB
     Indication: Asthma
     Dosage: 100 MG, Q4W
     Route: 058
     Dates: start: 20210802
  5. MEPOLIZUMAB [Suspect]
     Active Substance: MEPOLIZUMAB
     Indication: Asthma
     Dosage: 100 MG, Q4W
     Route: 058
     Dates: start: 20210802
  6. MEPOLIZUMAB [Suspect]
     Active Substance: MEPOLIZUMAB
     Indication: Asthma
     Dosage: 100 MG, Q4W
     Route: 058
     Dates: start: 20210802
  7. MEPOLIZUMAB [Suspect]
     Active Substance: MEPOLIZUMAB
     Indication: Asthma
     Dosage: 100 MG, Q4W
     Route: 058
     Dates: start: 20210802
  8. MEPOLIZUMAB [Suspect]
     Active Substance: MEPOLIZUMAB
     Indication: Asthma
     Dosage: 100 MG, Q4W
     Route: 058
     Dates: start: 20210802
  9. TRELEGY ELLIPTA [Concomitant]
     Active Substance: FLUTICASONE FUROATE\UMECLIDINIUM BROMIDE\VILANTEROL TRIFENATATE
     Indication: Product used for unknown indication
     Dosage: 1 PUFF(S), QD 100 MCG
  10. ARNUITY ELLIPTA [Concomitant]
     Active Substance: FLUTICASONE FUROATE
     Indication: Product used for unknown indication
     Dosage: 1 PUFF(S), QD 100 MCG
  11. VENTOLIN [Concomitant]
     Active Substance: ALBUTEROL SULFATE
     Indication: Product used for unknown indication
     Dosage: 2 PUFF(S) 100MCG PRN
  12. DYMISTA [Concomitant]
     Active Substance: AZELASTINE HYDROCHLORIDE\FLUTICASONE PROPIONATE
     Indication: Product used for unknown indication
     Dosage: UNK
  13. OMNARIS [Concomitant]
     Active Substance: CICLESONIDE
     Indication: Product used for unknown indication
     Dosage: UNK
  14. ESCITALOPRAM [Concomitant]
     Active Substance: ESCITALOPRAM OXALATE
     Indication: Product used for unknown indication
     Dosage: 20 MG

REACTIONS (23)
  - Cervical spinal stenosis [Not Recovered/Not Resolved]
  - Abdominal wall haemorrhage [Not Recovered/Not Resolved]
  - Retinal detachment [Unknown]
  - Dyspnoea [Unknown]
  - Positive airway pressure therapy [Not Recovered/Not Resolved]
  - Bursitis [Unknown]
  - Osteoarthritis [Not Recovered/Not Resolved]
  - Road traffic accident [Unknown]
  - Pain [Unknown]
  - Epistaxis [Unknown]
  - Ear haemorrhage [Unknown]
  - Influenza [Unknown]
  - Bronchitis [Unknown]
  - Amnesia [Unknown]
  - Urinary tract infection [Recovered/Resolved]
  - Psychological trauma [Unknown]
  - Stress [Unknown]
  - Anxiety [Unknown]
  - Blood pressure systolic increased [Unknown]
  - Neck pain [Recovering/Resolving]
  - Back pain [Recovering/Resolving]
  - Arthralgia [Recovering/Resolving]
  - Cyst [Unknown]

NARRATIVE: CASE EVENT DATE: 20230726
